FAERS Safety Report 13586111 (Version 1)
Quarter: 2017Q2

REPORT INFORMATION
  Report Type: Not Available
  Country: AU (occurrence: AU)
  Receive Date: 20170526
  Receipt Date: 20170526
  Transmission Date: 20170830
  Serious: Yes (Death)
  Sender: FDA-Public Use
  Company Number: AU-ANIPHARMA-2017-AU-000020

PATIENT
  Age: 43 Year
  Sex: Female

DRUGS (3)
  1. LAMOTRIGINE. [Suspect]
     Active Substance: LAMOTRIGINE
     Dosage: 11G
     Route: 048
  2. FLUOXETINE HYDROCHLORIDE (NON-SPECIFIC) [Suspect]
     Active Substance: FLUOXETINE HYDROCHLORIDE
     Route: 048
  3. TEMAZEPAM. [Suspect]
     Active Substance: TEMAZEPAM
     Dosage: 500MG
     Route: 048

REACTIONS (7)
  - Clonus [Unknown]
  - Hyperthermia [Unknown]
  - Cardiac arrest [Unknown]
  - Seizure [Unknown]
  - Intentional overdose [Fatal]
  - Death [Fatal]
  - Multiple organ dysfunction syndrome [Fatal]
